FAERS Safety Report 9174787 (Version 1)
Quarter: 2013Q1

REPORT INFORMATION
  Report Type: Spontaneous
  Country: BR (occurrence: BR)
  Receive Date: 20130320
  Receipt Date: 20130320
  Transmission Date: 20140127
  Serious: Yes (Other)
  Sender: FDA-Public Use
  Company Number: BR-ASTRAZENECA-2013SE16326

PATIENT
  Age: 58 Year
  Sex: Female
  Weight: 110 kg

DRUGS (5)
  1. SELOZOK [Suspect]
     Indication: BLOOD PRESSURE ABNORMAL
     Route: 048
     Dates: end: 201303
  2. SELOZOK [Suspect]
     Indication: BLOOD PRESSURE ABNORMAL
     Dosage: SELOZOK FIX 5/50MG, OD
     Route: 048
     Dates: start: 201303
  3. OMEPRAZOLE [Suspect]
     Indication: GASTRITIS
     Route: 048
  4. OMEPRAZOLE [Suspect]
     Indication: HELICOBACTER INFECTION
     Route: 048
  5. LORATADINE [Concomitant]
     Indication: RHINITIS
     Route: 048

REACTIONS (4)
  - Hypertension [Not Recovered/Not Resolved]
  - Blood pressure increased [Recovered/Resolved]
  - Off label use [Recovered/Resolved]
  - Drug ineffective [Unknown]
